FAERS Safety Report 5409448-X (Version None)
Quarter: 2007Q3

REPORT INFORMATION
  Report Type: 
  Country: None (occurrence: None)
  Receive Date: 20070807
  Receipt Date: 20070723
  Transmission Date: 20080115
  Serious: Yes (Other)
  Sender: FDA-Public Use
  Company Number: SPV1-2007-03658

PATIENT
  Age: 11 Year
  Sex: Male

DRUGS (5)
  1. ADDERALL XR 10 [Suspect]
     Indication: ATTENTION DEFICIT/HYPERACTIVITY DISORDER
     Dosage: 30 MG, 1X/DAY; QD, ORAL
     Route: 048
     Dates: start: 20070101
  2. ADDERALL 10 [Suspect]
  3. DEPAKOTE (VALPROATE SEMISODIUM) TABLET [Concomitant]
  4. CLONIDINE (CLONIDINE) TABLET [Concomitant]
  5. ABILIFY [Concomitant]

REACTIONS (4)
  - AGGRESSION [None]
  - CONDITION AGGRAVATED [None]
  - PHYSICAL ASSAULT [None]
  - VIOLENCE-RELATED SYMPTOM [None]
